FAERS Safety Report 9464309 (Version 1)
Quarter: 2013Q3

REPORT INFORMATION
  Report Type: Spontaneous
  Country: GB (occurrence: GB)
  Receive Date: 20130819
  Receipt Date: 20130819
  Transmission Date: 20140515
  Serious: Yes (Death)
  Sender: FDA-Public Use
  Company Number: GB-NOVEN-13GB007464

PATIENT
  Age: 35 Year
  Sex: Male
  Weight: 168 kg

DRUGS (12)
  1. PAROXETINE [Suspect]
     Indication: DEPRESSED MOOD
     Dosage: 20 MG, QD
     Route: 048
  2. ZAPONEX [Suspect]
     Indication: SCHIZOPHRENIA
     Dosage: 550 MG, BEDTIME
     Route: 048
     Dates: start: 20070219, end: 20130507
  3. ZAPONEX [Suspect]
     Dosage: UNK
     Route: 048
     Dates: start: 20041112, end: 200702
  4. HYOSCINE [Suspect]
     Indication: SALIVARY HYPERSECRETION
     Dosage: 300 UG, BID
  5. EPILIM [Suspect]
     Dosage: 200 MG, BID
     Route: 048
     Dates: start: 2007
  6. DIAZEPAM [Suspect]
     Indication: ANXIETY
     Dosage: 2.5 MG, QD
     Route: 048
     Dates: start: 2007
  7. ZOPICLONE [Concomitant]
     Indication: INSOMNIA
     Dosage: 3.75 MG, QD
     Route: 048
     Dates: start: 2007
  8. ETHANOL [Suspect]
     Indication: PRODUCT USED FOR UNKNOWN INDICATION
  9. LANSOPRAZOLE [Concomitant]
     Indication: GASTRIC DISORDER
     Dosage: 30 MG, QD
  10. SENNA PLUS                         /00142201/ [Concomitant]
     Indication: CONSTIPATION
     Dosage: 2 TABLETS, QD
  11. PROCYCLIDINE [Concomitant]
     Indication: EXTRAPYRAMIDAL DISORDER
     Dosage: 5 MG, BID
     Dates: start: 2007
  12. CO-CODAMOL [Concomitant]
     Indication: BACK PAIN
     Dosage: UNK
     Dates: start: 201304

REACTIONS (7)
  - Drug interaction [Fatal]
  - Death [Fatal]
  - Toxicity to various agents [Fatal]
  - Pulmonary oedema [Fatal]
  - Gastritis erosive [Fatal]
  - Arteriosclerosis [Fatal]
  - Lower respiratory tract infection [Fatal]
